FAERS Safety Report 4389178-6 (Version None)
Quarter: 2004Q2

REPORT INFORMATION
  Report Type: 
  Country: None (occurrence: None)
  Receive Date: 20040628
  Receipt Date: 20040421
  Transmission Date: 20050107
  Serious: Yes (Death)
  Sender: FDA-Public Use
  Company Number: S04-UKI-01876-01

PATIENT
  Age: 86 Year
  Sex: Female

DRUGS (7)
  1. MEMANTINE HCL [Suspect]
     Indication: DEMENTIA
     Dosage: 5 MG QD PO
     Route: 048
     Dates: start: 20021130, end: 20021204
  2. ARTHROTEC [Concomitant]
  3. CALCICHEW (CALCIUM CARBONATE) [Concomitant]
  4. FUROSEMIDE [Concomitant]
  5. PREDNISOLONE [Concomitant]
  6. PERNICILLAMINE [Concomitant]
  7. ACETAMINOPHEN AND CODEINE PHOSPHATE [Concomitant]

REACTIONS (2)
  - BRONCHOPNEUMONIA [None]
  - CEREBROVASCULAR ACCIDENT [None]
